FAERS Safety Report 9917705 (Version 3)
Quarter: 2014Q3

REPORT INFORMATION
  Report Type: Spontaneous
  Country: AU (occurrence: AU)
  Receive Date: 20140221
  Receipt Date: 20140721
  Transmission Date: 20150326
  Serious: Yes (Hospitalization, Other)
  Sender: FDA-Public Use
  Company Number: AU-ABBVIE-14P-008-1201853-00

PATIENT
  Age: 27 Year
  Sex: Female
  Weight: 127 kg

DRUGS (3)
  1. ESCITALOPRAM [Concomitant]
     Active Substance: ESCITALOPRAM OXALATE
     Indication: DEPRESSION
  2. HUMIRA [Suspect]
     Active Substance: ADALIMUMAB
     Indication: RHEUMATOID ARTHRITIS
     Route: 058
     Dates: start: 20130819, end: 20140530
  3. METHOTREXATE [Concomitant]
     Active Substance: METHOTREXATE
     Indication: CROHN^S DISEASE
     Route: 058
     Dates: start: 20140515

REACTIONS (8)
  - Proctitis [Unknown]
  - Gastroenteritis [Recovered/Resolved]
  - Crohn^s disease [Unknown]
  - Painful defaecation [Recovered/Resolved]
  - Tonsillitis [Recovered/Resolved]
  - Crohn^s disease [Unknown]
  - Haematochezia [Recovering/Resolving]
  - Immunosuppression [Not Recovered/Not Resolved]

NARRATIVE: CASE EVENT DATE: 201402
